FAERS Safety Report 5090210-5 (Version None)
Quarter: 2006Q3

REPORT INFORMATION
  Report Type: 
  Country: None (occurrence: None)
  Receive Date: 20060828
  Receipt Date: 20060818
  Transmission Date: 20061208
  Serious: Yes (Other)
  Sender: FDA-Public Use
  Company Number: 2006AP03970

PATIENT

DRUGS (3)
  1. NEXIUM [Suspect]
  2. INDOMETHACIN [Concomitant]
  3. UNSPECIFIED DRUGS [Concomitant]

REACTIONS (1)
  - RENAL FAILURE [None]
